FAERS Safety Report 10579397 (Version 3)
Quarter: 2015Q1

REPORT INFORMATION
  Report Type: Spontaneous
  Country: US (occurrence: US)
  Receive Date: 20141112
  Receipt Date: 20150114
  Transmission Date: 20150720
  Serious: No
  Sender: FDA-Public Use
  Company Number: US-PFIZER INC-2014311286

PATIENT
  Age: 82 Year
  Sex: Female

DRUGS (2)
  1. DEPO-MEDROL [Suspect]
     Active Substance: METHYLPREDNISOLONE ACETATE
     Indication: JOINT INJURY
     Dosage: 80 MG, SINGLE
     Dates: start: 201407
  2. DEPO-MEDROL [Suspect]
     Active Substance: METHYLPREDNISOLONE ACETATE
     Indication: PAIN

REACTIONS (6)
  - Pain [Recovering/Resolving]
  - Movement disorder [Recovering/Resolving]
  - Fatigue [Not Recovered/Not Resolved]
  - Gait disturbance [Recovering/Resolving]
  - Anxiety [Recovered/Resolved]
  - Insomnia [Not Recovered/Not Resolved]
